FAERS Safety Report 4894099-6 (Version None)
Quarter: 2006Q1

REPORT INFORMATION
  Report Type: 
  Country: None (occurrence: None)
  Receive Date: 20060127
  Receipt Date: 20050718
  Transmission Date: 20060701
  Serious: No
  Sender: FDA-Public Use
  Company Number: S05-USA-03444-01

PATIENT
  Age: 55 Year
  Sex: Female

DRUGS (2)
  1. WELLBUTRIN [Suspect]
     Indication: DEPRESSION
     Dosage: 300MG PER DAY
     Route: 048
  2. CAMPRAL [Suspect]
     Indication: ALCOHOLISM
     Dosage: 666MG THREE TIMES PER DAY
     Route: 048
     Dates: start: 20050617

REACTIONS (3)
  - DIZZINESS [None]
  - DRUG INTERACTION [None]
  - MIGRAINE WITH AURA [None]
